FAERS Safety Report 6650671-4 (Version None)
Quarter: 2010Q1

REPORT INFORMATION
  Report Type: 
  Country: None (occurrence: None)
  Receive Date: 20100325
  Receipt Date: 20100311
  Transmission Date: 20100710
  Serious: No
  Sender: FDA-Public Use
  Company Number: US-BIOGENIDEC-2010BI008445

PATIENT
  Age: 31 Year
  Sex: Female

DRUGS (2)
  1. AVONEX [Suspect]
     Indication: MULTIPLE SCLEROSIS
     Route: 030
     Dates: start: 20091223, end: 20100212
  2. AVONEX [Suspect]
     Route: 030
     Dates: start: 20100212

REACTIONS (8)
  - ASTHENIA [None]
  - BACK PAIN [None]
  - FATIGUE [None]
  - HEADACHE [None]
  - HYPOAESTHESIA [None]
  - MEDICAL DEVICE COMPLICATION [None]
  - POOR VENOUS ACCESS [None]
  - TREMOR [None]
